FAERS Safety Report 18472923 (Version 1)
Quarter: 2020Q4

REPORT INFORMATION
  Report Type: Report from Study
  Country: CA (occurrence: CA)
  Receive Date: 20201106
  Receipt Date: 20201106
  Transmission Date: 20210114
  Serious: Yes (Other)
  Sender: FDA-Public Use
  Company Number: CA-GLAXOSMITHKLINE-CA2019AMR232145

PATIENT
  Sex: Male

DRUGS (1)
  1. MEPOLIZUMAB [Suspect]
     Active Substance: MEPOLIZUMAB
     Indication: ASTHMA
     Dosage: 100 MG, Z(MONTHLY)
     Dates: start: 20160902

REACTIONS (10)
  - Dyspnoea [Unknown]
  - Tension [Unknown]
  - Wheezing [Unknown]
  - Loss of personal independence in daily activities [Unknown]
  - Cough [Unknown]
  - Chest discomfort [Unknown]
  - Sleep disorder due to a general medical condition [Recovered/Resolved]
  - Throat clearing [Unknown]
  - Asthma [Unknown]
  - Feeling abnormal [Unknown]
